FAERS Safety Report 24987037 (Version 3)
Quarter: 2025Q1

REPORT INFORMATION
  Report Type: Spontaneous
  Country: ES (occurrence: ES)
  Receive Date: 20250219
  Receipt Date: 20250220
  Transmission Date: 20250409
  Serious: Yes (Other)
  Sender: PFIZER
  Company Number: ES-MLMSERVICE-20250205-PI396317-00082-2

PATIENT
  Age: 5 Month
  Sex: Female

DRUGS (3)
  1. CARBOPLATIN [Suspect]
     Active Substance: CARBOPLATIN
     Indication: Congenital retinoblastoma
  2. ETOPOSIDE [Concomitant]
     Active Substance: ETOPOSIDE
     Indication: Congenital retinoblastoma
     Dosage: DAY 1-3; UNDETERMINED NUMBER OF CYCLES
  3. VINCRISTINE [Concomitant]
     Active Substance: VINCRISTINE
     Indication: Congenital retinoblastoma
     Dosage: D1; UNDETERMINED NUMBER OF CYCLES
     Route: 042

REACTIONS (2)
  - Drug hypersensitivity [Unknown]
  - Off label use [Unknown]
